FAERS Safety Report 5186531-8 (Version None)
Quarter: 2006Q4

REPORT INFORMATION
  Report Type: 
  Country: None (occurrence: None)
  Receive Date: 20061213
  Receipt Date: 20061204
  Transmission Date: 20070319
  Serious: Yes (Hospitalization)
  Sender: FDA-Public Use
  Company Number: 2006148761

PATIENT
  Age: 65 Year
  Sex: Female

DRUGS (4)
  1. ROGAINE [Suspect]
     Dosage: AS DIRECTED, TWICE DAILY, TOPICAL
     Route: 061
     Dates: end: 20061028
  2. METOPROLOL SUCCINATE [Concomitant]
  3. AMLODIPINE BESYLATE [Concomitant]
  4. DRUG, UNSPECIFIED [Concomitant]

REACTIONS (2)
  - CHEST PAIN [None]
  - HEART RATE IRREGULAR [None]
